FAERS Safety Report 21253054 (Version 3)
Quarter: 2022Q4

REPORT INFORMATION
  Report Type: Report from Study
  Country: CO (occurrence: CO)
  Receive Date: 20220825
  Receipt Date: 20221010
  Transmission Date: 20230112
  Serious: Yes (Death, Hospitalization)
  Sender: FDA-Public Use
  Company Number: CO-NOVARTISPH-NVSC2022CO174817

PATIENT
  Sex: Female

DRUGS (2)
  1. KISQALI [Suspect]
     Active Substance: RIBOCICLIB
     Indication: Hormone receptor positive HER2 negative breast cancer
     Dosage: 600 MG, QD
     Route: 048
  2. LOSARTAN [Suspect]
     Active Substance: LOSARTAN
     Indication: Hypertension
     Dosage: UNK, QD (SINCE TWO YEARS AGO)
     Route: 048

REACTIONS (11)
  - Lung disorder [Fatal]
  - General physical health deterioration [Fatal]
  - Pulmonary oedema [Unknown]
  - Malaise [Unknown]
  - Dysphagia [Unknown]
  - Pain [Unknown]
  - Peripheral swelling [Unknown]
  - Therapy non-responder [Unknown]
  - Effusion [Unknown]
  - Aphasia [Unknown]
  - Lacrimation increased [Unknown]
